FAERS Safety Report 11129429 (Version 2)
Quarter: 2015Q2

REPORT INFORMATION
  Report Type: Spontaneous
  Country: US (occurrence: US)
  Receive Date: 20150521
  Receipt Date: 20150529
  Transmission Date: 20150821
  Serious: No
  Sender: FDA-Public Use
  Company Number: CHPA2015US006431

PATIENT
  Age: 74 Year
  Sex: Female

DRUGS (2)
  1. PERDIEM (SENNOSIDES A AND B) [Suspect]
     Active Substance: SENNOSIDES A AND B
     Dosage: 1 DF, EVERY 2 TO 3 DAYS
     Route: 048
  2. PERDIEM (SENNOSIDES A AND B) [Suspect]
     Active Substance: SENNOSIDES A AND B
     Indication: BOWEL MOVEMENT IRREGULARITY
     Dosage: 2 DF, ONCE/SINGLE
     Route: 048

REACTIONS (1)
  - Off label use [Unknown]
